FAERS Safety Report 12662058 (Version 2)
Quarter: 2017Q1

REPORT INFORMATION
  Report Type: Spontaneous
  Country: US (occurrence: US)
  Receive Date: 20160817
  Receipt Date: 20170108
  Transmission Date: 20170428
  Serious: No
  Sender: FDA-Public Use
  Company Number: US-CELGENEUS-USA-2016083392

PATIENT
  Sex: Male

DRUGS (1)
  1. OTEZLA [Suspect]
     Active Substance: APREMILAST
     Indication: PSORIASIS
     Dosage: 60 MILLIGRAM
     Route: 048
     Dates: start: 20160815, end: 20160930

REACTIONS (1)
  - Diarrhoea [Recovered/Resolved]
